FAERS Safety Report 7418634-9 (Version None)
Quarter: 2011Q2

REPORT INFORMATION
  Report Type: 
  Country: None (occurrence: None)
  Receive Date: 20110415
  Receipt Date: 20101014
  Transmission Date: 20111010
  Serious: Yes (Hospitalization, Other)
  Sender: FDA-Public Use
  Company Number: US-BAYER-201017003NA

PATIENT
  Age: 31 Year
  Sex: Female
  Weight: 112 kg

DRUGS (4)
  1. NSAID'S [Concomitant]
     Route: 065
  2. RHINOCORT [Concomitant]
  3. ZYRTEC [Concomitant]
     Route: 065
  4. YASMIN [Suspect]
     Indication: PRODUCT USED FOR UNKNOWN INDICATION
     Route: 048
     Dates: start: 20031001, end: 20040215

REACTIONS (7)
  - PULMONARY THROMBOSIS [None]
  - PULMONARY EMBOLISM [None]
  - PAIN IN EXTREMITY [None]
  - THROMBOSIS [None]
  - DYSPNOEA [None]
  - DEEP VEIN THROMBOSIS [None]
  - MUSCULOSKELETAL STIFFNESS [None]
